FAERS Safety Report 23889890 (Version 2)
Quarter: 2025Q3

REPORT INFORMATION
  Report Type: Spontaneous
  Country: US (occurrence: US)
  Receive Date: 20240523
  Receipt Date: 20250911
  Transmission Date: 20251021
  Serious: No
  Sender: SANOFI AVENTIS
  Company Number: US-SA-SAC20240516000314

PATIENT
  Age: 2 Year
  Sex: Female

DRUGS (13)
  1. DUPIXENT [Suspect]
     Active Substance: DUPILUMAB
     Indication: Dermatitis atopic
     Dosage: 200 MG, Q4W
     Route: 058
     Dates: start: 20230928
  2. DUPIXENT [Suspect]
     Active Substance: DUPILUMAB
     Dosage: 300 MG, Q4W
     Route: 058
     Dates: start: 20240514
  3. EPINEPHRINE [Concomitant]
     Active Substance: EPINEPHRINE
  4. EUCRISA [Concomitant]
     Active Substance: CRISABOROLE
     Indication: Dermatitis atopic
  5. MOMETASONE [Concomitant]
     Active Substance: MOMETASONE
  6. PIMECROLIMUS [Concomitant]
     Active Substance: PIMECROLIMUS
  7. PREDNISOLONE [Concomitant]
     Active Substance: PREDNISOLONE
  8. TACROLIMUS [Concomitant]
     Active Substance: TACROLIMUS
  9. EPINEPHRINE [Concomitant]
     Active Substance: EPINEPHRINE
  10. EUCRISA [Concomitant]
     Active Substance: CRISABOROLE
  11. PREDNISOLONE [Concomitant]
     Active Substance: PREDNISOLONE
  12. A-HYDROCORT [Concomitant]
     Active Substance: HYDROCORTISONE SODIUM SUCCINATE
  13. Triamcinolon [Concomitant]

REACTIONS (3)
  - Rash [Not Recovered/Not Resolved]
  - Discomfort [Not Recovered/Not Resolved]
  - Sleep disorder due to a general medical condition [Not Recovered/Not Resolved]
